FAERS Safety Report 16726636 (Version 1)
Quarter: 2019Q3

REPORT INFORMATION
  Report Type: Spontaneous
  Country: CH (occurrence: CH)
  Receive Date: 20190821
  Receipt Date: 20190821
  Transmission Date: 20191005
  Serious: Yes (Other)
  Sender: FDA-Public Use
  Company Number: CH-BAUSCH-BL-2019-023618

PATIENT
  Age: 44 Year
  Sex: Male

DRUGS (3)
  1. VOLTAREN [Concomitant]
     Active Substance: DICLOFENAC SODIUM
     Indication: PRODUCT USED FOR UNKNOWN INDICATION
  2. VERTEPORFIN (NVO) [Suspect]
     Active Substance: VERTEPORFIN
     Dosage: AGAIN RECEIVED,FOR PHOTODYNAMIC THERAPY
     Route: 065
     Dates: start: 20161101, end: 20161101
  3. VERTEPORFIN (NVO) [Suspect]
     Active Substance: VERTEPORFIN
     Indication: CHORIORETINOPATHY
     Dosage: FOR PHOTODYNAMIC THERAPY
     Route: 065
     Dates: start: 20160809, end: 20160809

REACTIONS (10)
  - Visual impairment [Not Recovered/Not Resolved]
  - Injection site swelling [Unknown]
  - Injection site pain [Unknown]
  - Injection site inflammation [Unknown]
  - Thyroid cancer [Unknown]
  - Product use in unapproved indication [Recovered/Resolved]
  - Palpitations [Unknown]
  - Restlessness [Unknown]
  - Injection site discolouration [Unknown]
  - Hyperhidrosis [Unknown]

NARRATIVE: CASE EVENT DATE: 20161101
